FAERS Safety Report 5525777-3 (Version None)
Quarter: 2007Q4

REPORT INFORMATION
  Report Type: 
  Country: None (occurrence: None)
  Receive Date: 20071120
  Receipt Date: 20071112
  Transmission Date: 20080405
  Serious: Yes (Other)
  Sender: FDA-Public Use
  Company Number: 238563K07USA

PATIENT
  Age: 52 Year
  Sex: Female
  Weight: 70.3075 kg

DRUGS (7)
  1. REBIF [Suspect]
     Indication: MULTIPLE SCLEROSIS
     Dosage: 44 MCG, 3 IN 1 WEEKS, SUCUTANEOUS
     Route: 058
     Dates: start: 20060111
  2. TRICOR [Concomitant]
  3. LIPITOR [Concomitant]
  4. IBUPROFEN [Concomitant]
  5. CALCIUM (CALCIUM-SANDOZ) [Concomitant]
  6. LISINOPRIL [Concomitant]
  7. MULTIVITAMIN (MULTIVITAMIN) [Concomitant]

REACTIONS (2)
  - TYPE 2 DIABETES MELLITUS [None]
  - WEIGHT INCREASED [None]
